FAERS Safety Report 10055719 (Version 1)
Quarter: 2014Q2

REPORT INFORMATION
  Report Type: Spontaneous
  Country: US (occurrence: None)
  Receive Date: 20140402
  Receipt Date: 20140402
  Transmission Date: 20141212
  Serious: Yes (Life-Threatening, Hospitalization, Disabling)
  Sender: FDA-Public Use
  Company Number: None

PATIENT
  Age: 52 Year
  Sex: Female
  Weight: 58.97 kg

DRUGS (1)
  1. TRILEPTAL 300MG [Suspect]
     Indication: BIPOLAR DISORDER
     Dosage: 1 TABLET, THREE TIMES DAILY

REACTIONS (6)
  - Suicidal ideation [None]
  - Overdose [None]
  - Carbon monoxide poisoning [None]
  - Suicide attempt [None]
  - Generalised tonic-clonic seizure [None]
  - Cardio-respiratory arrest [None]
